FAERS Safety Report 6672333-X (Version None)
Quarter: 2010Q2

REPORT INFORMATION
  Report Type: 
  Country: None (occurrence: None)
  Receive Date: 20100408
  Receipt Date: 20100106
  Transmission Date: 20101027
  Serious: No
  Sender: FDA-Public Use
  Company Number: A0837894A

PATIENT
  Sex: Female

DRUGS (6)
  1. REQUIP XL [Suspect]
     Indication: DRUG USE FOR UNKNOWN INDICATION
     Dosage: 18MGD PER DAY
     Route: 048
  2. ENBREL [Concomitant]
  3. ARIMIDEX [Concomitant]
  4. UNSPECIFIED MEDICATION [Concomitant]
  5. COUMADIN [Concomitant]
  6. TYLENOL-500 [Concomitant]

REACTIONS (3)
  - CONTUSION [None]
  - RASH [None]
  - SKIN DISCOLOURATION [None]
